FAERS Safety Report 7586318-2 (Version None)
Quarter: 2011Q3

REPORT INFORMATION
  Report Type: 
  Country: None (occurrence: None)
  Receive Date: 20110701
  Receipt Date: 20110627
  Transmission Date: 20111222
  Serious: Yes (Hospitalization)
  Sender: FDA-Public Use
  Company Number: CA-ABBOTT-11P-028-0834829-00

PATIENT
  Sex: Female
  Weight: 67.646 kg

DRUGS (15)
  1. VITAMIN B-12 [Concomitant]
     Indication: VITAMIN B12 DECREASED
     Route: 030
     Dates: start: 20010101
  2. PENTASA [Concomitant]
     Indication: CROHN'S DISEASE
     Route: 048
     Dates: start: 19900101
  3. CALCIUM CARBONATE [Concomitant]
     Indication: ANAEMIA
     Route: 048
     Dates: start: 20010101
  4. AMILORIDE HYDROCHLORIDE [Concomitant]
     Indication: HYPERTENSION
     Route: 048
     Dates: start: 20010101
  5. LOPERAMIDE [Concomitant]
     Indication: DIARRHOEA
     Dosage: 2-4/DAY
     Route: 048
     Dates: start: 20010101
  6. STRESS TAB B [Concomitant]
     Indication: PRODUCT USED FOR UNKNOWN INDICATION
     Route: 048
     Dates: start: 20010101
  7. HUMIRA [Suspect]
     Indication: CROHN'S DISEASE
     Route: 058
     Dates: start: 20110524, end: 20110607
  8. ROCALTROL [Concomitant]
     Indication: ROUTINE HEALTH MAINTENANCE
     Route: 048
  9. NEXIUM [Concomitant]
     Indication: GASTRIC DISORDER
     Route: 048
     Dates: start: 19910101
  10. POTASSIUM CHLORIDE [Concomitant]
     Indication: CROHN'S DISEASE
     Route: 048
     Dates: start: 20010101
  11. MAGNESIUM [Concomitant]
     Indication: CROHN'S DISEASE
     Route: 030
     Dates: start: 20010101
  12. VENTOLIN HFA [Concomitant]
     Indication: ASTHMA
     Dosage: PRN
     Route: 055
     Dates: start: 19910101
  13. ATACAND [Concomitant]
     Indication: HYPERTENSION
     Route: 048
     Dates: start: 20110101
  14. PERCOCET/ACETAMINOPHEN [Concomitant]
     Indication: PAIN
     Dosage: 5 MG/325 MG PRN
     Route: 048
     Dates: start: 20060101
  15. HYDROMORPHONE HCL [Concomitant]
     Indication: PAIN
     Route: 048
     Dates: start: 20010101

REACTIONS (8)
  - DYSPNOEA [None]
  - CHEST DISCOMFORT [None]
  - PYREXIA [None]
  - UPPER RESPIRATORY TRACT INFECTION [None]
  - BRONCHITIS [None]
  - HOT FLUSH [None]
  - MALAISE [None]
  - HEART RATE INCREASED [None]
